FAERS Safety Report 10088002 (Version 2)
Quarter: 2014Q2

REPORT INFORMATION
  Report Type: Report from Study
  Country: CA (occurrence: CA)
  Receive Date: 20140420
  Receipt Date: 20140424
  Transmission Date: 20141212
  Serious: Yes (Death, Hospitalization, Other)
  Sender: FDA-Public Use
  Company Number: PHHY2014CA046748

PATIENT
  Age: 58 Year
  Sex: Female

DRUGS (2)
  1. SANDOSTATIN [Suspect]
     Indication: COLON CANCER METASTATIC
     Dosage: 100 UG, BID
     Route: 058
     Dates: start: 20140408
  2. SANDOSTATIN [Suspect]
     Dosage: 50 UG, BID
     Route: 058

REACTIONS (8)
  - Death [Fatal]
  - Respiratory disorder [Unknown]
  - General physical health deterioration [Unknown]
  - Terminal state [Unknown]
  - Asthenia [Unknown]
  - Pain [Unknown]
  - Flatulence [Unknown]
  - Abdominal pain [Unknown]
